FAERS Safety Report 7578164-0 (Version None)
Quarter: 2011Q2

REPORT INFORMATION
  Report Type: 
  Country: None (occurrence: None)
  Receive Date: 20110628
  Receipt Date: 20110621
  Transmission Date: 20111010
  Serious: Yes (Hospitalization)
  Sender: FDA-Public Use
  Company Number: A0932229A

PATIENT
  Age: 34 Year
  Sex: Male

DRUGS (3)
  1. ALBUTEROL SULFATE AUTOHALER [Concomitant]
  2. SYMBICORT [Concomitant]
  3. VENTOLIN HFA [Suspect]
     Indication: ASTHMA
     Route: 055

REACTIONS (6)
  - LOSS OF CONSCIOUSNESS [None]
  - WHITE BLOOD CELL COUNT INCREASED [None]
  - EXPOSURE TO TOXIC AGENT [None]
  - ASTHMA [None]
  - DYSPNOEA [None]
  - INFECTION [None]
